FAERS Safety Report 9442884 (Version 1)
Quarter: 2013Q3

REPORT INFORMATION
  Report Type: Spontaneous
  Country: US (occurrence: None)
  Receive Date: 20130805
  Receipt Date: 20130805
  Transmission Date: 20140515
  Serious: Yes (Other)
  Sender: FDA-Public Use
  Company Number: None

PATIENT
  Age: 43 Year
  Sex: Female
  Weight: 72.58 kg

DRUGS (1)
  1. CYMBALTA [Suspect]
     Indication: DEPRESSION
     Dosage: 120 MG ONCE A DAY PO
     Route: 048
     Dates: start: 20050801, end: 20130801

REACTIONS (12)
  - Self-injurious ideation [None]
  - Vertigo [None]
  - Haemorrhage [None]
  - Anxiety [None]
  - Scratch [None]
  - Scab [None]
  - Withdrawal syndrome [None]
  - Soliloquy [None]
  - Hypersomnia [None]
  - Logorrhoea [None]
  - Paraesthesia [None]
  - Skin ulcer [None]
